FAERS Safety Report 25127572 (Version 1)
Quarter: 2025Q1

REPORT INFORMATION
  Report Type: Spontaneous
  Country: US (occurrence: US)
  Receive Date: 20250327
  Receipt Date: 20250327
  Transmission Date: 20250408
  Serious: Yes (Hospitalization)
  Sender: AMGEN
  Company Number: US-AMGEN-USASP2025054480

PATIENT
  Age: 56 Year
  Sex: Male

DRUGS (2)
  1. RITUXIMAB [Suspect]
     Active Substance: RITUXIMAB
     Indication: Follicular lymphoma stage III
     Dosage: UNK, QWK
     Route: 065
  2. LENALIDOMIDE [Concomitant]
     Active Substance: LENALIDOMIDE
     Indication: Follicular lymphoma stage III
     Route: 065

REACTIONS (5)
  - Septic embolus [Unknown]
  - Endocarditis bacterial [Unknown]
  - Failure to thrive [Unknown]
  - Whipple^s disease [Recovering/Resolving]
  - Therapy partial responder [Unknown]
